FAERS Safety Report 15073581 (Version 2)
Quarter: 2019Q1

REPORT INFORMATION
  Report Type: Spontaneous
  Country: JP (occurrence: JP)
  Receive Date: 20180627
  Receipt Date: 20190131
  Transmission Date: 20190417
  Serious: Yes (Death, Other)
  Sender: FDA-Public Use
  Company Number: PHJP2018JP013170

PATIENT
  Age: 69 Year
  Sex: Male
  Weight: 52.2 kg

DRUGS (22)
  1. AFINITOR [Suspect]
     Active Substance: EVEROLIMUS
     Indication: METASTATIC RENAL CELL CARCINOMA
     Dosage: 5 MG, BID
     Route: 048
     Dates: start: 20140109, end: 20140416
  2. FAMOTIDINE. [Concomitant]
     Active Substance: FAMOTIDINE
     Indication: CHRONIC GASTRITIS
     Dosage: 20 MG, QD
     Route: 048
     Dates: start: 20120927
  3. MERISLON [Concomitant]
     Active Substance: BETAHISTINE MESILATE
     Indication: DIZZINESS
     Dosage: 12 MG, TID
     Route: 048
  4. DEXALTIN [Concomitant]
     Active Substance: DEXAMETHASONE
     Indication: PROPHYLAXIS
     Dosage: UNK
     Route: 061
     Dates: start: 20140109
  5. CARDENALIN [Concomitant]
     Active Substance: DOXAZOSIN MESYLATE
     Indication: HYPERTENSION
     Dosage: 1 MG, QD
     Route: 048
  6. VEGIN [Concomitant]
     Indication: SKIN DISORDER PROPHYLAXIS
     Dosage: UNK
     Route: 061
     Dates: start: 20140109
  7. LAC-B [Concomitant]
     Active Substance: BIFIDOBACTERIUM SPP.
     Indication: DIARRHOEA
     Dosage: 1 G, TID
     Route: 048
  8. EPADEL-S [Concomitant]
     Active Substance: ICOSAPENT ETHYL
     Indication: HYPERLIPIDAEMIA
     Dosage: 600 MG, QD
     Route: 048
     Dates: end: 20140115
  9. ALLEGRA [Concomitant]
     Active Substance: FEXOFENADINE HYDROCHLORIDE
     Indication: URTICARIA
     Dosage: 60 MG, BID
     Route: 048
  10. TANATRIL [Concomitant]
     Active Substance: IMIDAPRIL
     Indication: HYPERTENSION
     Dosage: 2.5 MG, BID
     Route: 048
  11. SELTOUCH [Concomitant]
     Active Substance: FELBINAC
     Indication: BACK PAIN
     Dosage: 70 MG, UNK
     Route: 065
     Dates: start: 20140117
  12. NEUFAN [Concomitant]
     Active Substance: ALLOPURINOL
     Indication: HYPERURICAEMIA
     Dosage: 100 MG, QD
     Route: 048
  13. SENNOSIDE [Concomitant]
     Active Substance: SENNOSIDES
     Indication: PROPHYLAXIS
     Dosage: 24 MG, UNK
     Route: 048
     Dates: start: 20140114
  14. ADETPHOS [Concomitant]
     Active Substance: ADENOSINE TRIPHOSPHATE
     Indication: DIZZINESS
     Dosage: 1.8 G, TID
     Route: 048
  15. PZC [Concomitant]
     Active Substance: PERPHENAZINE
     Indication: PRODUCT USED FOR UNKNOWN INDICATION
     Dosage: 0.4 G, BID
     Route: 048
  16. AZUNOL [Concomitant]
     Active Substance: SODIUM GUALENATE
     Indication: PROPHYLAXIS
     Dosage: UNK
     Route: 065
     Dates: start: 20140109
  17. CERCINE [Concomitant]
     Active Substance: DIAZEPAM
     Indication: BACK PAIN
     Dosage: 2 MG, BID
     Route: 048
     Dates: start: 20140126
  18. TRAMAL [Concomitant]
     Active Substance: TRAMADOL
     Indication: METASTATIC RENAL CELL CARCINOMA
     Dosage: 25 MG, BID
     Route: 048
     Dates: start: 20130411
  19. AMLODIPINE [Concomitant]
     Active Substance: AMLODIPINE BESYLATE
     Indication: HYPERTENSION
     Dosage: 5 MG, QD
     Route: 048
  20. ETHYL ICOSAPENTATE [Concomitant]
     Active Substance: ICOSAPENT ETHYL
     Indication: HYPERLIPIDAEMIA
     Dosage: 600 MG, QD
     Route: 048
     Dates: start: 20140116
  21. PRAVASTATIN NA [Concomitant]
     Active Substance: PRAVASTATIN SODIUM
     Indication: HYPERLIPIDAEMIA
     Dosage: 10 MG, QD
     Route: 048
  22. MOHRUS [Concomitant]
     Active Substance: KETOPROFEN
     Indication: BACK PAIN
     Dosage: 20 MG, UNK
     Route: 062
     Dates: start: 20140124

REACTIONS (6)
  - Malignant neoplasm progression [Fatal]
  - Anaemia [Not Recovered/Not Resolved]
  - Scrotal oedema [Not Recovered/Not Resolved]
  - Oedema peripheral [Not Recovered/Not Resolved]
  - Metastatic renal cell carcinoma [Fatal]
  - Bone marrow failure [Unknown]

NARRATIVE: CASE EVENT DATE: 20140325
